FAERS Safety Report 13984311 (Version 9)
Quarter: 2018Q1

REPORT INFORMATION
  Report Type: Spontaneous
  Country: BE (occurrence: BE)
  Receive Date: 20170918
  Receipt Date: 20180328
  Transmission Date: 20180508
  Serious: Yes (Hospitalization, Other)
  Sender: FDA-Public Use
  Company Number: BE-SA-2017SA166774

PATIENT
  Age: 43 Year
  Sex: Male

DRUGS (45)
  1. ENDOXAN [Suspect]
     Active Substance: CYCLOPHOSPHAMIDE
     Indication: DIFFUSE LARGE B-CELL LYMPHOMA
     Dosage: POWDER FOR SOLUTION FOR INJECTION, INFUSION
     Route: 065
     Dates: start: 201205
  2. DEXAMETHASONE SALT NOT SPECIFIED [Suspect]
     Active Substance: DEXAMETHASONE
     Indication: PROPHYLAXIS
     Route: 065
     Dates: start: 2016
  3. DOXORUBICIN [Suspect]
     Active Substance: DOXORUBICIN
     Indication: DIFFUSE LARGE B-CELL LYMPHOMA STAGE III
     Route: 065
     Dates: start: 201205
  4. VANCOMYCIN [Suspect]
     Active Substance: VANCOMYCIN
     Indication: STAPHYLOCOCCAL INFECTION
     Route: 065
  5. CARBOPLATIN. [Suspect]
     Active Substance: CARBOPLATIN
     Indication: DIFFUSE LARGE B-CELL LYMPHOMA
     Dosage: ICE REGIMEN
     Route: 065
     Dates: start: 2014
  6. CYTARABINE. [Suspect]
     Active Substance: CYTARABINE
     Indication: DIFFUSE LARGE B-CELL LYMPHOMA
     Route: 065
     Dates: start: 201412
  7. BENDAMUSTINE HYDROCHLORIDE. [Suspect]
     Active Substance: BENDAMUSTINE HYDROCHLORIDE
     Indication: DIFFUSE LARGE B-CELL LYMPHOMA RECURRENT
     Route: 042
  8. RITUXIMAB. [Suspect]
     Active Substance: RITUXIMAB
     Indication: DIFFUSE LARGE B-CELL LYMPHOMA
     Dosage: RITUXIMAB-BENDAMUSTIN
     Route: 065
     Dates: start: 201205
  9. RITUXIMAB. [Suspect]
     Active Substance: RITUXIMAB
     Indication: DIFFUSE LARGE B-CELL LYMPHOMA
     Dosage: R-CHOP
     Route: 065
  10. BLINATUMOMAB [Suspect]
     Active Substance: BLINATUMOMAB
     Indication: DIFFUSE LARGE B-CELL LYMPHOMA
     Dosage: CONTINUOUS INFUSION
     Route: 041
     Dates: start: 20161229, end: 20170104
  11. CELLTOP [Suspect]
     Active Substance: ETOPOSIDE
     Indication: DIFFUSE LARGE B-CELL LYMPHOMA
     Route: 065
     Dates: start: 201412
  12. CARMUSTINE [Suspect]
     Active Substance: CARMUSTINE
     Indication: DIFFUSE LARGE B-CELL LYMPHOMA STAGE III
     Route: 065
     Dates: start: 201412
  13. MELPHALAN. [Suspect]
     Active Substance: MELPHALAN
     Indication: STEM CELL TRANSPLANT
     Route: 065
     Dates: start: 201412
  14. GEMCITABINE [Suspect]
     Active Substance: GEMCITABINE\GEMCITABINE HYDROCHLORIDE
     Indication: DIFFUSE LARGE B-CELL LYMPHOMA
     Route: 065
  15. ENDOXAN [Suspect]
     Active Substance: CYCLOPHOSPHAMIDE
     Indication: DIFFUSE LARGE B-CELL LYMPHOMA
     Route: 065
  16. VINCRISTINE [Suspect]
     Active Substance: VINCRISTINE
     Indication: DIFFUSE LARGE B-CELL LYMPHOMA
     Route: 065
     Dates: start: 201205
  17. HOLOXAN [Suspect]
     Active Substance: IFOSFAMIDE
     Indication: DIFFUSE LARGE B-CELL LYMPHOMA
     Dosage: POWDER FOR SOLUTION FOR INJECTION
     Route: 065
     Dates: start: 2014
  18. RITUXIMAB. [Suspect]
     Active Substance: RITUXIMAB
     Indication: DIFFUSE LARGE B-CELL LYMPHOMA
     Dosage: R-CHOP
     Route: 065
     Dates: start: 2013
  19. RITUXIMAB. [Suspect]
     Active Substance: RITUXIMAB
     Indication: DIFFUSE LARGE B-CELL LYMPHOMA
     Dosage: R-CHOP
     Route: 065
  20. BLINATUMOMAB [Suspect]
     Active Substance: BLINATUMOMAB
     Indication: DIFFUSE LARGE B-CELL LYMPHOMA
     Dosage: CONTINUOUS INFUSION
     Route: 042
     Dates: start: 20170104, end: 20170308
  21. CARBOPLATIN. [Suspect]
     Active Substance: CARBOPLATIN
     Indication: MALIGNANT NEOPLASM PROGRESSION
     Dosage: ICE REGIMEN
     Route: 065
     Dates: start: 2014
  22. CELLTOP [Suspect]
     Active Substance: ETOPOSIDE
     Indication: STEM CELL TRANSPLANT
     Route: 065
     Dates: start: 2014
  23. CYTARABINE. [Suspect]
     Active Substance: CYTARABINE
     Indication: BONE MARROW CONDITIONING REGIMEN
     Route: 065
     Dates: start: 201412
  24. VINCRISTINE [Suspect]
     Active Substance: VINCRISTINE
     Indication: DIFFUSE LARGE B-CELL LYMPHOMA
     Route: 065
  25. RITUXIMAB. [Suspect]
     Active Substance: RITUXIMAB
     Indication: B-CELL LYMPHOMA
     Dosage: R-CHOP
     Route: 065
  26. CARMUSTINE [Suspect]
     Active Substance: CARMUSTINE
     Indication: STEM CELL TRANSPLANT
     Route: 065
     Dates: start: 201412
  27. CYTARABINE. [Suspect]
     Active Substance: CYTARABINE
     Indication: STEM CELL TRANSPLANT
     Route: 065
     Dates: start: 201412
  28. PREDNISONE. [Suspect]
     Active Substance: PREDNISONE
     Indication: DIFFUSE LARGE B-CELL LYMPHOMA
     Route: 065
  29. OXALIPLATIN. [Suspect]
     Active Substance: OXALIPLATIN
     Indication: DIFFUSE LARGE B-CELL LYMPHOMA
     Dosage: INFUSION
     Route: 065
  30. DEXAMETHASONE SALT NOT SPECIFIED [Suspect]
     Active Substance: DEXAMETHASONE
     Indication: PROPHYLAXIS
     Route: 065
  31. RITUXIMAB. [Suspect]
     Active Substance: RITUXIMAB
     Indication: B-CELL LYMPHOMA
     Dosage: RITUXIMAB-BENDAMUSTIN
     Route: 065
     Dates: start: 201205
  32. RITUXIMAB. [Suspect]
     Active Substance: RITUXIMAB
     Indication: B-CELL LYMPHOMA
     Dosage: R-CHOP
     Route: 065
  33. DOXORUBICIN [Suspect]
     Active Substance: DOXORUBICIN
     Indication: DIFFUSE LARGE B-CELL LYMPHOMA STAGE III
     Route: 065
  34. VANCOMYCIN [Suspect]
     Active Substance: VANCOMYCIN
     Indication: DEVICE RELATED INFECTION
     Route: 065
  35. CELLTOP [Suspect]
     Active Substance: ETOPOSIDE
     Indication: MALIGNANT NEOPLASM PROGRESSION
     Route: 065
     Dates: start: 201412
  36. HOLOXAN [Suspect]
     Active Substance: IFOSFAMIDE
     Indication: MALIGNANT NEOPLASM PROGRESSION
     Dosage: POWDER FOR SOLUTION FOR INJECTION
     Route: 065
     Dates: start: 2014
  37. RITUXIMAB. [Suspect]
     Active Substance: RITUXIMAB
     Indication: B-CELL LYMPHOMA
     Dosage: R-CHOP
     Route: 065
     Dates: start: 2013
  38. CELLTOP [Suspect]
     Active Substance: ETOPOSIDE
     Indication: DIFFUSE LARGE B-CELL LYMPHOMA
     Route: 065
     Dates: start: 2014
  39. CELLTOP [Suspect]
     Active Substance: ETOPOSIDE
     Indication: MALIGNANT NEOPLASM PROGRESSION
     Route: 065
     Dates: start: 2014
  40. CELLTOP [Suspect]
     Active Substance: ETOPOSIDE
     Indication: STEM CELL TRANSPLANT
     Route: 065
     Dates: start: 201412
  41. MELPHALAN. [Suspect]
     Active Substance: MELPHALAN
     Indication: DIFFUSE LARGE B-CELL LYMPHOMA
     Route: 065
     Dates: start: 201412
  42. PREDNISONE. [Suspect]
     Active Substance: PREDNISONE
     Indication: DIFFUSE LARGE B-CELL LYMPHOMA
     Route: 065
     Dates: start: 201205
  43. BLINATUMOMAB [Suspect]
     Active Substance: BLINATUMOMAB
     Indication: DIFFUSE LARGE B-CELL LYMPHOMA
     Dosage: CONTINUOUS INFUSION
     Route: 065
     Dates: start: 20170105, end: 20170111
  44. MELPHALAN. [Suspect]
     Active Substance: MELPHALAN
     Indication: STEM CELL TRANSPLANT
     Route: 065
     Dates: start: 201401
  45. MELPHALAN. [Suspect]
     Active Substance: MELPHALAN
     Indication: DIFFUSE LARGE B-CELL LYMPHOMA
     Route: 065
     Dates: start: 201401

REACTIONS (21)
  - Metastases to lung [Recovered/Resolved]
  - Metastases to spleen [Recovered/Resolved]
  - Cytokine release syndrome [Recovered/Resolved]
  - Diffuse large B-cell lymphoma [Recovered/Resolved]
  - Drug ineffective [Recovered/Resolved]
  - Metastases to retroperitoneum [Recovered/Resolved]
  - Metastases to muscle [Recovered/Resolved]
  - Device related infection [Unknown]
  - End stage renal disease [Recovered/Resolved]
  - Glomerular filtration rate decreased [Recovered/Resolved]
  - Staphylococcal infection [Unknown]
  - Neutropenic sepsis [Recovered/Resolved]
  - Drug ineffective for unapproved indication [Unknown]
  - Malignant neoplasm progression [Recovered/Resolved]
  - Cytopenia [Recovered/Resolved]
  - Pyrexia [Unknown]
  - Renal impairment [Recovered/Resolved]
  - Nervous system disorder [Recovered/Resolved]
  - Metastases to bone marrow [Recovered/Resolved]
  - Metastases to liver [Recovered/Resolved]
  - Tubulointerstitial nephritis [Unknown]
